FAERS Safety Report 6212035-7 (Version None)
Quarter: 2009Q2

REPORT INFORMATION
  Report Type: 
  Country: None (occurrence: None)
  Receive Date: 20090529
  Receipt Date: 20090511
  Transmission Date: 20091009
  Serious: Yes (Other)
  Sender: FDA-Public Use
  Company Number: JPI-P-007137

PATIENT
  Age: 28 Year
  Sex: Female
  Weight: 70.3075 kg

DRUGS (5)
  1. XYREM [Suspect]
     Indication: CATAPLEXY
     Dosage: 4.5 GM (2.25 GM,2 IN 1 D),ORAL
     Route: 048
     Dates: start: 20090507, end: 20090510
  2. XYREM [Suspect]
     Indication: NARCOLEPSY
     Dosage: 4.5 GM (2.25 GM,2 IN 1 D),ORAL
     Route: 048
     Dates: start: 20090507, end: 20090510
  3. AMPHETAMINE AND DEXTROAMPHETAMINE SALTS [Concomitant]
  4. VENLAFAXINE HYDROCHLORIDE [Concomitant]
  5. UNSPECIFIED BIRTH CONTROL [Concomitant]

REACTIONS (8)
  - ABDOMINAL PAIN UPPER [None]
  - ANOREXIA [None]
  - BLOOD PRESSURE INCREASED [None]
  - COLD SWEAT [None]
  - DEHYDRATION [None]
  - FEELING OF BODY TEMPERATURE CHANGE [None]
  - NAUSEA [None]
  - TREMOR [None]
